FAERS Safety Report 10031910 (Version 1)
Quarter: 2014Q1

REPORT INFORMATION
  Report Type: Spontaneous
  Country: US (occurrence: US)
  Receive Date: 20140324
  Receipt Date: 20140324
  Transmission Date: 20141002
  Serious: Yes (Other)
  Sender: FDA-Public Use
  Company Number: US-PFIZER INC-2014079437

PATIENT
  Age: 74 Year
  Sex: Female

DRUGS (1)
  1. SUTENT [Suspect]
     Indication: METASTATIC RENAL CELL CARCINOMA
     Dosage: UNK
     Dates: start: 20140103

REACTIONS (13)
  - Tooth abscess [Unknown]
  - Type 2 diabetes mellitus [Unknown]
  - Pain [Unknown]
  - Swelling face [Unknown]
  - Dysgeusia [Unknown]
  - Decreased appetite [Unknown]
  - Oral pain [Unknown]
  - Blood pressure increased [Unknown]
  - Fatigue [Unknown]
  - Hair colour changes [Unknown]
  - Diarrhoea [Unknown]
  - Nausea [Unknown]
  - Abdominal pain [Unknown]
